FAERS Safety Report 16677974 (Version 1)
Quarter: 2020Q3

REPORT INFORMATION
  Report Type: Spontaneous
  Country: PT (occurrence: PT)
  Receive Date: 20190807
  Receipt Date: 20190807
  Transmission Date: 20201104
  Serious: Yes (Other)
  Sender: FDA-Public Use
  Company Number: PT-PFIZER INC-2019331911

PATIENT
  Age: 80 Year
  Sex: Male
  Weight: 60 kg

DRUGS (11)
  1. ROCURONIUM BROMIDE. [Suspect]
     Active Substance: ROCURONIUM BROMIDE
     Indication: GENERAL ANAESTHESIA
     Dosage: 20 MG, (0.33 MG/KG)
  2. ROCURONIUM BROMIDE. [Interacting]
     Active Substance: ROCURONIUM BROMIDE
     Dosage: 50 MG, (0.83 MG/KG)
  3. FENTANYL. [Interacting]
     Active Substance: FENTANYL
     Indication: GENERAL ANAESTHESIA
     Dosage: 150 UG, UNK
  4. PARECOXIB SODIUM. [Interacting]
     Active Substance: PARECOXIB SODIUM
     Indication: ANALGESIC THERAPY
     Dosage: 40 MG, UNK
  5. FENTANYL. [Interacting]
     Active Substance: FENTANYL
     Dosage: 100 UG, UNK
  6. REMIFENTANIL [Interacting]
     Active Substance: REMIFENTANIL
     Indication: MAINTENANCE OF ANAESTHESIA
     Dosage: 0.15 ?G/KG/MIN WITH MAINTENANCE OF BIS BETWEEN 38?46
  7. PROPOFOL. [Interacting]
     Active Substance: PROPOFOL
     Indication: GENERAL ANAESTHESIA
     Dosage: 150 MG, UNK
  8. SEVOFLURANE. [Interacting]
     Active Substance: SEVOFLURANE
     Indication: MAINTENANCE OF ANAESTHESIA
     Dosage: 1.0% ? 1.2% IN A MIXTURE OF 45% O2 AND AIR
  9. MIDAZOLAM HYDROCHLORIDE. [Interacting]
     Active Substance: MIDAZOLAM HYDROCHLORIDE
     Dosage: 3 MG, UNK
  10. METAMIZOLE [Interacting]
     Active Substance: METAMIZOLE
     Indication: ANALGESIC THERAPY
     Dosage: 2000 MG, UNK
  11. PARACETAMOL [Interacting]
     Active Substance: ACETAMINOPHEN
     Indication: ANALGESIC THERAPY
     Dosage: 1000 MG, UNK

REACTIONS (2)
  - Drug interaction [Unknown]
  - Neuromuscular block prolonged [Recovered/Resolved]
